FAERS Safety Report 5891107-0 (Version None)
Quarter: 2008Q3

REPORT INFORMATION
  Report Type: 
  Country: None (occurrence: None)
  Receive Date: 20080918
  Receipt Date: 20080918
  Transmission Date: 20090109
  Serious: Yes (Hospitalization)
  Sender: FDA-Public Use
  Company Number: None

PATIENT
  Age: 64 Year
  Sex: Male
  Weight: 30.391 kg

DRUGS (2)
  1. DOCETAXEL [Suspect]
     Indication: METASTATIC SQUAMOUS CELL CARCINOMA
     Dosage: 137 MG Q21 DAYS IV
     Route: 042
     Dates: start: 20080221, end: 20080313
  2. ZACTIMA -ZD 6474- [Suspect]
     Indication: METASTATIC SQUAMOUS CELL CARCINOMA
     Dosage: 100MG QD PO
     Route: 048
     Dates: start: 20080313, end: 20080320

REACTIONS (5)
  - DISEASE PROGRESSION [None]
  - FAECES DISCOLOURED [None]
  - GASTROINTESTINAL HAEMORRHAGE [None]
  - HAEMOGLOBIN DECREASED [None]
  - METASTASES TO GASTROINTESTINAL TRACT [None]
